FAERS Safety Report 5136037-7 (Version None)
Quarter: 2006Q4

REPORT INFORMATION
  Report Type: 
  Country: None (occurrence: None)
  Receive Date: 20061023
  Receipt Date: 20061011
  Transmission Date: 20070319
  Serious: Yes (Life-Threatening, Hospitalization)
  Sender: FDA-Public Use
  Company Number: 231044

PATIENT
  Age: 59 Year
  Sex: Female
  Weight: 56 kg

DRUGS (15)
  1. AVASTIN [Suspect]
     Indication: PANCREATIC CARCINOMA METASTATIC
     Dosage: 10 MG/KG, Q2W, INTRAVENOUS
     Route: 042
     Dates: start: 20060516
  2. DILAUDID [Concomitant]
  3. DIOVAN [Concomitant]
  4. FENTANYL CITRATE [Concomitant]
  5. AMBIEN [Concomitant]
  6. LACTULOSE [Concomitant]
  7. HYDROCODONE HYDROCODONE BITARTRATE) [Concomitant]
  8. L-THYROXINE (LEVOTHYROXINE SODIUM) [Concomitant]
  9. MARINOL [Concomitant]
  10. NEXIUM [Concomitant]
  11. PROVIGIL [Concomitant]
  12. SENOKOT [Concomitant]
  13. WELLBUTRIN [Concomitant]
  14. ZYRTEC [Concomitant]
  15. MEDICATION ( UNK INGREDIENT) (GENERIC COMPONENT(S) NOT KNOW) [Concomitant]

REACTIONS (8)
  - AGGRESSION [None]
  - BODY TEMPERATURE INCREASED [None]
  - CONVULSION [None]
  - HAEMATEMESIS [None]
  - HYPERTENSIVE CRISIS [None]
  - NAUSEA [None]
  - VOMITING [None]
  - WHITE BLOOD CELL COUNT INCREASED [None]
